FAERS Safety Report 4284978-5 (Version None)
Quarter: 2004Q1

REPORT INFORMATION
  Report Type: 
  Country: None (occurrence: None)
  Receive Date: 20040202
  Receipt Date: 20040120
  Transmission Date: 20041129
  Serious: Yes (Other)
  Sender: FDA-Public Use
  Company Number: US-JNJFOC-20031204228

PATIENT
  Age: 54 Year
  Sex: Female
  Weight: 127.0072 kg

DRUGS (2)
  1. REMICADE [Suspect]
     Indication: PSORIATIC ARTHROPATHY
     Dosage: SEE IMAGE
     Dates: end: 20030601
  2. METHOTREXATE SODIUM [Concomitant]

REACTIONS (6)
  - DYSPNOEA EXACERBATED [None]
  - DYSPNOEA EXERTIONAL [None]
  - EJECTION FRACTION DECREASED [None]
  - EXERCISE TOLERANCE DECREASED [None]
  - FATIGUE [None]
  - HYPERHIDROSIS [None]
